FAERS Safety Report 16537447 (Version 2)
Quarter: 2019Q3

REPORT INFORMATION
  Report Type: Spontaneous
  Country: CO (occurrence: CO)
  Receive Date: 20190708
  Receipt Date: 20190827
  Transmission Date: 20191004
  Serious: Yes (Other)
  Sender: FDA-Public Use
  Company Number: CO-AMGEN-COLSP2019108024

PATIENT
  Age: 50 Year
  Sex: Female

DRUGS (1)
  1. ENBREL [Suspect]
     Active Substance: ETANERCEPT
     Indication: RHEUMATOID ARTHRITIS
     Dosage: 50 MILLIGRAM, QWK
     Route: 058
     Dates: start: 2014, end: 2019

REACTIONS (4)
  - Gait disturbance [Unknown]
  - Ovarian cancer [Unknown]
  - Abdominal pain upper [Unknown]
  - Uterine cancer [Unknown]

NARRATIVE: CASE EVENT DATE: 201905
